FAERS Safety Report 9977788 (Version 2)
Quarter: 2014Q1

REPORT INFORMATION
  Report Type: Report from Study
  Country: US (occurrence: US)
  Receive Date: 20140306
  Receipt Date: 20140306
  Transmission Date: 20141002
  Serious: Yes (Other)
  Sender: FDA-Public Use
  Company Number: US-ABBVIE-13P-163-1145628-00

PATIENT
  Age: 61 Year
  Sex: Female

DRUGS (19)
  1. HUMIRA [Suspect]
     Indication: CROHN^S DISEASE
     Dates: start: 20130813, end: 20130813
  2. HUMIRA [Suspect]
     Indication: RHEUMATOID ARTHRITIS
     Dates: end: 20130904
  3. B12 [Concomitant]
     Indication: PRODUCT USED FOR UNKNOWN INDICATION
  4. LOPERAMIDE [Concomitant]
     Indication: DIARRHOEA
  5. FLEXERIL [Concomitant]
     Indication: MUSCLE SPASMS
  6. KLOR-CON [Concomitant]
     Indication: PRODUCT USED FOR UNKNOWN INDICATION
  7. PANTOPRAZOLE [Concomitant]
     Indication: DYSPEPSIA
  8. GABAPENTIN [Concomitant]
     Indication: MUSCLE SPASMS
  9. LISINOPRIL [Concomitant]
     Indication: HYPERTENSION
  10. METOPROLOL [Concomitant]
     Indication: HYPERTENSION
  11. FOLIC ACID [Concomitant]
     Indication: PRODUCT USED FOR UNKNOWN INDICATION
  12. SUDAFED [Concomitant]
     Indication: SINUS DISORDER
  13. AMLODIPINE [Concomitant]
     Indication: HYPERTENSION
  14. PROZAC [Concomitant]
     Indication: PRODUCT USED FOR UNKNOWN INDICATION
  15. PROZAC [Concomitant]
  16. HYDROCODONE [Concomitant]
     Indication: PAIN
     Dosage: 10/325 TWICE DAILY
  17. VITAMIN D [Concomitant]
     Indication: VITAMIN D DECREASED
  18. OXYCODONE [Concomitant]
     Indication: PRODUCT USED FOR UNKNOWN INDICATION
     Dosage: AT NIGHT
  19. CALCIUM [Concomitant]
     Indication: PRODUCT USED FOR UNKNOWN INDICATION

REACTIONS (9)
  - Stevens-Johnson syndrome [Not Recovered/Not Resolved]
  - Device malfunction [Not Recovered/Not Resolved]
  - Device malfunction [Not Recovered/Not Resolved]
  - Back pain [Not Recovered/Not Resolved]
  - Fluid intake reduced [Not Recovered/Not Resolved]
  - Oral pain [Not Recovered/Not Resolved]
  - Oral disorder [Recovering/Resolving]
  - Swollen tongue [Recovering/Resolving]
  - Glossodynia [Recovering/Resolving]
